FAERS Safety Report 7542989-8 (Version None)
Quarter: 2011Q2

REPORT INFORMATION
  Report Type: 
  Country: None (occurrence: None)
  Receive Date: 20110613
  Receipt Date: 20110531
  Transmission Date: 20111010
  Serious: Yes (Other)
  Sender: FDA-Public Use
  Company Number: PHHY2011BR48391

PATIENT
  Sex: Male

DRUGS (2)
  1. DIOVAN [Suspect]
     Indication: HYPERTENSION
     Dosage: 1 DF, DAILY
     Route: 048
  2. DIOVAN [Suspect]
     Dosage: 0.5 DF, (HALF A TABLET IN THE MORNING AND AT NIGHT)
     Route: 048

REACTIONS (2)
  - LUNG NEOPLASM MALIGNANT [None]
  - WRONG TECHNIQUE IN DRUG USAGE PROCESS [None]
